FAERS Safety Report 9127896 (Version 7)
Quarter: 2021Q4

REPORT INFORMATION
  Report Type: Report from Study
  Country: CA (occurrence: CA)
  Receive Date: 20130228
  Receipt Date: 20211202
  Transmission Date: 20220304
  Serious: Yes (Hospitalization, Other)
  Sender: FDA-Public Use
  Company Number: CA-JNJFOC-20130214094

PATIENT
  Age: 45 Year
  Sex: Female
  Weight: 66.284 kg

DRUGS (4)
  1. SIMPONI [Suspect]
     Active Substance: GOLIMUMAB
     Indication: Psoriatic arthropathy
     Route: 058
     Dates: start: 20111110, end: 201305
  2. SIMPONI [Suspect]
     Active Substance: GOLIMUMAB
     Route: 058
     Dates: start: 20140916
  3. PREDNISONE [Concomitant]
     Active Substance: PREDNISONE
     Route: 048
  4. METHOTREXATE SODIUM [Concomitant]
     Active Substance: METHOTREXATE SODIUM
     Route: 058
     Dates: end: 201302

REACTIONS (10)
  - Myocardial infarction [Unknown]
  - Ischaemic stroke [Unknown]
  - Ovarian cancer [Unknown]
  - Endometrial cancer [Unknown]
  - Vaginal haemorrhage [Unknown]
  - Skin disorder [Unknown]
  - Liver disorder [Unknown]
  - Pulmonary embolism [Unknown]
  - Adverse event [Unknown]
  - Inappropriate schedule of product administration [Unknown]

NARRATIVE: CASE EVENT DATE: 20130508
